FAERS Safety Report 26211262 (Version 1)
Quarter: 2025Q4

REPORT INFORMATION
  Report Type: Spontaneous
  Country: US (occurrence: US)
  Receive Date: 20251230
  Receipt Date: 20251230
  Transmission Date: 20260117
  Serious: No
  Sender: ABBVIE
  Company Number: US-ABBVIE-6609039

PATIENT
  Sex: Female

DRUGS (1)
  1. HUMIRA [Suspect]
     Active Substance: ADALIMUMAB
     Indication: Product used for unknown indication
     Dosage: FORM STRENGTH: 40 MILLIGRAM, FREQUENCY: 2 PENS FOR 28 DAYS SUPPLY.
     Route: 058
     Dates: start: 2005

REACTIONS (1)
  - Condition aggravated [Not Recovered/Not Resolved]
